FAERS Safety Report 21259463 (Version 2)
Quarter: 2022Q3

REPORT INFORMATION
  Report Type: Report from Study
  Country: US (occurrence: US)
  Receive Date: 20220826
  Receipt Date: 20220901
  Transmission Date: 20221027
  Serious: Yes (Death)
  Sender: FDA-Public Use
  Company Number: US-ABBVIE-22K-163-4517911-00

PATIENT
  Sex: Male

DRUGS (3)
  1. HUMIRA [Suspect]
     Active Substance: ADALIMUMAB
     Indication: Psoriatic arthropathy
     Route: 058
  2. HUMIRA [Suspect]
     Active Substance: ADALIMUMAB
     Indication: Rheumatoid arthritis
  3. PFIZER-BIONTECH COVID-19 VACCINE [Concomitant]
     Active Substance: TOZINAMERAN
     Indication: COVID-19 immunisation
     Dosage: 3RD DOSE
     Route: 030
     Dates: start: 20211121

REACTIONS (3)
  - Cardiac failure congestive [Fatal]
  - Thrombosis [Fatal]
  - Myocardial infarction [Fatal]

NARRATIVE: CASE EVENT DATE: 20220101
